FAERS Safety Report 14449124 (Version 1)
Quarter: 2018Q1

REPORT INFORMATION
  Report Type: Report from Study
  Country: US (occurrence: US)
  Receive Date: 20180126
  Receipt Date: 20180126
  Transmission Date: 20180509
  Serious: Yes (Hospitalization)
  Sender: FDA-Public Use
  Company Number: US-ROCHE-2050928-IND

PATIENT
  Age: 68 Year
  Sex: Male
  Weight: 74.8 kg

DRUGS (15)
  1. MIRALAX [Concomitant]
     Active Substance: POLYETHYLENE GLYCOL 3350
     Indication: CONSTIPATION
     Dosage: DOSE: 1 UNIT
     Route: 048
     Dates: start: 20160131
  2. COGNITEX [Concomitant]
     Dosage: AS SUPPLEMENT
     Route: 048
     Dates: start: 20161215
  3. VITAMIN D3 [Concomitant]
     Active Substance: CHOLECALCIFEROL
     Dosage: AS SUPPLEMENT
     Route: 048
     Dates: start: 20161219
  4. VAYACOG [Concomitant]
     Dosage: AS SUPPLEMENT
     Route: 048
     Dates: start: 20170501
  5. MYRBETRIQ [Concomitant]
     Active Substance: MIRABEGRON
     Route: 048
     Dates: start: 20171024, end: 20171204
  6. TOLTERODINE [Concomitant]
     Active Substance: TOLTERODINE
     Indication: MICTURITION URGENCY
     Route: 048
     Dates: start: 20171205
  7. OMEPRAZOLE. [Concomitant]
     Active Substance: OMEPRAZOLE
     Indication: GASTROOESOPHAGEAL REFLUX DISEASE
     Route: 048
     Dates: start: 20160115
  8. GENTAMICIN SOLUTION [Concomitant]
     Indication: PARONYCHIA
     Dosage: DOSE: 2 OTHER
     Route: 061
     Dates: start: 20170703
  9. CRENEZUMAB. [Suspect]
     Active Substance: CRENEZUMAB
     Indication: DEMENTIA ALZHEIMER^S TYPE
     Dosage: DATE OF MOST RECENT DOSE PRIOR TO SAE ONSET: 08/DEC/2017
     Route: 042
     Dates: start: 20160818
  10. PROLENSA [Concomitant]
     Active Substance: BROMFENAC SODIUM
     Indication: CATARACT OPERATION
     Route: 047
     Dates: start: 20171128
  11. ARICEPT [Concomitant]
     Active Substance: DONEPEZIL HYDROCHLORIDE
     Indication: DEMENTIA ALZHEIMER^S TYPE
     Route: 048
     Dates: start: 20160324
  12. FISH OIL [Concomitant]
     Active Substance: FISH OIL
     Dosage: AS SUPPLEMENT
     Route: 048
     Dates: start: 20170221
  13. RANITIDINE. [Concomitant]
     Active Substance: RANITIDINE
     Indication: GASTROOESOPHAGEAL REFLUX DISEASE
     Route: 048
     Dates: start: 20170921
  14. FLORBETAPIR (18F) [Suspect]
     Active Substance: FLORBETAPIR F-18
     Indication: DEMENTIA ALZHEIMER^S TYPE
     Dosage: DATE OF MOST RECENT DOSE OF AMYLOID TRACER PRIOR TO SAE ONSET: 08/APR/2016
     Route: 042
  15. COLACE [Concomitant]
     Active Substance: DOCUSATE SODIUM
     Indication: CONSTIPATION
     Route: 048
     Dates: start: 20160131

REACTIONS (1)
  - Seizure [Recovered/Resolved]

NARRATIVE: CASE EVENT DATE: 20171230
